FAERS Safety Report 4690389-0 (Version None)
Quarter: 2005Q2

REPORT INFORMATION
  Report Type: 
  Country: None (occurrence: None)
  Receive Date: 20050615
  Receipt Date: 20050519
  Transmission Date: 20051028
  Serious: Yes (Life-Threatening, Hospitalization, Other)
  Sender: FDA-Public Use
  Company Number: JP-MERCK-0505USA02770

PATIENT
  Age: 65 Year
  Sex: Male
  Weight: 69 kg

DRUGS (4)
  1. PRIMAXIN [Suspect]
     Indication: NASOPHARYNGITIS
     Route: 030
     Dates: end: 20050514
  2. DORMICUM (MIDAZOLAM) [Concomitant]
     Indication: SEDATION
     Route: 042
     Dates: end: 20050514
  3. PROPOFOL [Concomitant]
     Indication: SEDATION
     Route: 042
     Dates: start: 20050514, end: 20050515
  4. PRIMAXIN [Suspect]
     Route: 030
     Dates: start: 20050201

REACTIONS (6)
  - ANAPHYLACTIC SHOCK [None]
  - ARTERIOSPASM CORONARY [None]
  - ELECTROCARDIOGRAM ST SEGMENT ELEVATION [None]
  - FEELING ABNORMAL [None]
  - MYOCARDIAL INFARCTION [None]
  - PRURITUS [None]
